FAERS Safety Report 19444380 (Version 1)
Quarter: 2021Q2

REPORT INFORMATION
  Report Type: Spontaneous
  Country: FR (occurrence: FR)
  Receive Date: 20210621
  Receipt Date: 20210621
  Transmission Date: 20210717
  Serious: Yes (Life-Threatening, Hospitalization)
  Sender: FDA-Public Use
  Company Number: NVSC2021FR137893

PATIENT
  Age: 53 Year
  Sex: Female
  Weight: 71 kg

DRUGS (5)
  1. DOXORUBICINE ACCORD [Suspect]
     Active Substance: DOXORUBICIN
     Indication: FOLLICULAR LYMPHOMA STAGE III
     Dosage: 86 MG,QD (516 MG/303MG/M 6 CURES)
     Route: 042
     Dates: start: 20210122, end: 20210510
  2. VINCRISTINE SULFATE. [Suspect]
     Active Substance: VINCRISTINE SULFATE
     Indication: FOLLICULAR LYMPHOMA STAGE III
     Dosage: 2 MG,QD
     Route: 042
     Dates: start: 20210122, end: 20210510
  3. CYCLOPHOSPHAMIDE. [Suspect]
     Active Substance: CYCLOPHOSPHAMIDE
     Indication: FOLLICULAR LYMPHOMA STAGE III
     Dosage: 1290 MG,QD (6 CURES)
     Route: 042
     Dates: start: 20210122, end: 20210510
  4. RITUXIMAB. [Suspect]
     Active Substance: RITUXIMAB
     Indication: FOLLICULAR LYMPHOMA STAGE III
     Dosage: 645 MG,QD
     Route: 042
     Dates: start: 20210122, end: 20210510
  5. PREDNISONE. [Suspect]
     Active Substance: PREDNISONE
     Indication: FOLLICULAR LYMPHOMA STAGE III
     Dosage: 70MG
     Route: 048
     Dates: start: 20210123, end: 20210514

REACTIONS (1)
  - Cardiogenic shock [Not Recovered/Not Resolved]

NARRATIVE: CASE EVENT DATE: 20210529
